FAERS Safety Report 8026557-X (Version None)
Quarter: 2012Q1

REPORT INFORMATION
  Report Type: 
  Country: None (occurrence: None)
  Receive Date: 20120106
  Receipt Date: 20111228
  Transmission Date: 20120608
  Serious: Yes (Hospitalization)
  Sender: FDA-Public Use
  Company Number: US-BIOGENIDEC-2011BI010615

PATIENT
  Age: 66 Year
  Sex: Male

DRUGS (1)
  1. TYSABRI [Suspect]
     Indication: MULTIPLE SCLEROSIS
     Route: 042
     Dates: start: 20110120

REACTIONS (11)
  - SHOULDER OPERATION [None]
  - MENTAL IMPAIRMENT [None]
  - ROTATOR CUFF SYNDROME [None]
  - ROAD TRAFFIC ACCIDENT [None]
  - DRUG EFFECT DECREASED [None]
  - GAIT DISTURBANCE [None]
  - RASH [None]
  - JOINT DISLOCATION [None]
  - PSORIASIS [None]
  - PRURITUS ALLERGIC [None]
  - HYPERSENSITIVITY [None]
